FAERS Safety Report 12228073 (Version 4)
Quarter: 2016Q2

REPORT INFORMATION
  Report Type: Spontaneous
  Country: IT (occurrence: IT)
  Receive Date: 20160401
  Receipt Date: 20160503
  Transmission Date: 20160815
  Serious: Yes (Other)
  Sender: FDA-Public Use
  Company Number: IT-ACCORD-039191

PATIENT
  Age: 34 Year
  Sex: Male

DRUGS (2)
  1. METHOTREXATE [Suspect]
     Active Substance: METHOTREXATE
     Indication: ACUTE LYMPHOCYTIC LEUKAEMIA
     Dosage: 2000 MG (CONTINUES INFUSION OF 24 HOURS) ON 20-JAN-2016
     Route: 041
     Dates: start: 20160120
  2. CYTARABINE/CYTARABINE HYDROCHLORIDE/CYTARABINE OCFOSFATE [Suspect]
     Active Substance: CYTARABINE
     Indication: ACUTE LYMPHOCYTIC LEUKAEMIA
     Dosage: 6000 MG (3 HOURS INFUSION)/12 HOURS FOR 4 DOSES FROM 9 PM ON 21-JAN-2016 TO 9 AM ON 23-JAN-2016
     Route: 042
     Dates: start: 20160121

REACTIONS (4)
  - Acute lymphocytic leukaemia [Unknown]
  - Disease progression [Unknown]
  - Leukocytosis [Recovered/Resolved]
  - Off label use [Unknown]

NARRATIVE: CASE EVENT DATE: 20160209
